APPROVED DRUG PRODUCT: AZITHROMYCIN
Active Ingredient: AZITHROMYCIN
Strength: EQ 100MG BASE/5ML
Dosage Form/Route: FOR SUSPENSION;ORAL
Application: A065419 | Product #001
Applicant: TEVA PHARMACEUTICALS USA
Approved: Jun 24, 2008 | RLD: No | RS: No | Type: DISCN